FAERS Safety Report 6920841-6 (Version None)
Quarter: 2010Q3

REPORT INFORMATION
  Report Type: 
  Country: None (occurrence: None)
  Receive Date: 20100812
  Receipt Date: 20100805
  Transmission Date: 20110219
  Serious: Yes (Life-Threatening, Disabling)
  Sender: FDA-Public Use
  Company Number: CA-ALLERGAN-1010229US

PATIENT
  Age: 64 Year
  Sex: Male
  Weight: 67.12 kg

DRUGS (8)
  1. BOTOX [Suspect]
     Indication: PRODUCT USED FOR UNKNOWN INDICATION
     Dosage: 300 UNITS, SINGLE
     Route: 030
  2. ALTACE [Concomitant]
  3. ASPIRIN [Concomitant]
  4. CLONAZEPAM [Concomitant]
  5. COSOPT [Concomitant]
  6. FLOMAX [Concomitant]
  7. LIPITOR [Concomitant]
  8. METOPROLOL TARTRATE [Concomitant]

REACTIONS (7)
  - DEPRESSION [None]
  - DRY MOUTH [None]
  - HYPOKINESIA [None]
  - LETHARGY [None]
  - MUSCULAR WEAKNESS [None]
  - PARAESTHESIA [None]
  - SPEECH DISORDER [None]
